FAERS Safety Report 11487228 (Version 2)
Quarter: 2018Q3

REPORT INFORMATION
  Report Type: Spontaneous
  Country: US (occurrence: US)
  Receive Date: 20150909
  Receipt Date: 20180820
  Transmission Date: 20181010
  Serious: No
  Sender: FDA-Public Use
  Company Number: US-JAZZ-2015-US-002087

PATIENT
  Sex: Female

DRUGS (47)
  1. PROPOFOL. [Concomitant]
     Active Substance: PROPOFOL
  2. TRAMADOL HYDROCHLORIDE. [Concomitant]
     Active Substance: TRAMADOL HYDROCHLORIDE
  3. PROLIA [Concomitant]
     Active Substance: DENOSUMAB
  4. TRANSDERM SCOP [Concomitant]
     Active Substance: SCOPOLAMINE
  5. OLOPATADINE. [Concomitant]
     Active Substance: OLOPATADINE
  6. FLUCONAZOLE. [Concomitant]
     Active Substance: FLUCONAZOLE
  7. GABAPENTIN. [Concomitant]
     Active Substance: GABAPENTIN
  8. LAMOTRIGINE. [Concomitant]
     Active Substance: LAMOTRIGINE
  9. LIDOCAINE. [Concomitant]
     Active Substance: LIDOCAINE
  10. XYREM [Suspect]
     Active Substance: SODIUM OXYBATE
     Dosage: DOSE ADJUSTMENTS
     Route: 048
  11. XYREM [Suspect]
     Active Substance: SODIUM OXYBATE
     Dosage: 2.25 G, FIRST DOSE
     Route: 048
     Dates: start: 201501
  12. XYREM [Suspect]
     Active Substance: SODIUM OXYBATE
     Dosage: 2 G, SECOND DOSE
     Route: 048
     Dates: start: 201501
  13. SYNTHROID [Concomitant]
     Active Substance: LEVOTHYROXINE SODIUM
  14. HYALGAN [Concomitant]
     Active Substance: HYALURONATE SODIUM
  15. NABUMETONE. [Concomitant]
     Active Substance: NABUMETONE
  16. ZITHROMAX [Concomitant]
     Active Substance: AZITHROMYCIN DIHYDRATE
  17. CYTOMEL [Concomitant]
     Active Substance: LIOTHYRONINE SODIUM
  18. DESONIDE. [Concomitant]
     Active Substance: DESONIDE
  19. ORPHENADRINE [Concomitant]
     Active Substance: ORPHENADRINE
  20. PREVIDENT 5000 PLUS [Concomitant]
  21. LIPITOR [Concomitant]
     Active Substance: ATORVASTATIN CALCIUM
  22. SINGULAIR [Concomitant]
     Active Substance: MONTELUKAST SODIUM
  23. NORVASC [Concomitant]
     Active Substance: AMLODIPINE BESYLATE
  24. DICLOFENAC SODIUM. [Concomitant]
     Active Substance: DICLOFENAC SODIUM
  25. AZASITE [Concomitant]
     Active Substance: AZITHROMYCIN MONOHYDRATE
  26. CALCIUM [Concomitant]
     Active Substance: CALCIUM
  27. PILOCARPINE HCL [Concomitant]
     Active Substance: PILOCARPINE HYDROCHLORIDE
  28. RESTASIS [Concomitant]
     Active Substance: CYCLOSPORINE
  29. CODEINE SULFATE. [Concomitant]
     Active Substance: CODEINE SULFATE
  30. PREVACID [Concomitant]
     Active Substance: LANSOPRAZOLE
  31. PHENOBARBITAL. [Concomitant]
     Active Substance: PHENOBARBITAL
  32. PROPRANOLOL [Concomitant]
     Active Substance: PROPRANOLOL HYDROCHLORIDE
  33. HUMIRA [Concomitant]
     Active Substance: ADALIMUMAB
  34. FOLIC ACID. [Concomitant]
     Active Substance: FOLIC ACID
  35. DICLOFENAC [Concomitant]
     Active Substance: DICLOFENAC
  36. CHLORAL HYDRATE [Concomitant]
     Active Substance: CHLORAL HYDRATE
  37. MAGNESIUM OXIDE. [Concomitant]
     Active Substance: MAGNESIUM OXIDE
  38. AZITHROMYCIN ANHYDROUS. [Concomitant]
     Active Substance: AZITHROMYCIN ANHYDROUS
  39. LIOTHYRONINE SODIUM. [Concomitant]
     Active Substance: LIOTHYRONINE SODIUM
  40. FISH OIL [Concomitant]
     Active Substance: FISH OIL
  41. ERGOCALCIFEROL. [Concomitant]
     Active Substance: ERGOCALCIFEROL
  42. ONDANSETRON [Concomitant]
     Active Substance: ONDANSETRON
  43. XYREM [Suspect]
     Active Substance: SODIUM OXYBATE
     Indication: SLEEP DISORDER
     Dosage: 2.25 G, BID
     Route: 048
     Dates: start: 201312, end: 201401
  44. PROAIR HFA [Concomitant]
     Active Substance: ALBUTEROL SULFATE
  45. FAMOTIDINE. [Concomitant]
     Active Substance: FAMOTIDINE
  46. MOMETASONE FUROATE. [Concomitant]
     Active Substance: MOMETASONE FUROATE
  47. ADVAIR HFA [Concomitant]
     Active Substance: FLUTICASONE PROPIONATE\SALMETEROL XINAFOATE

REACTIONS (1)
  - Raynaud^s phenomenon [Not Recovered/Not Resolved]
